FAERS Safety Report 8329387-4 (Version None)
Quarter: 2012Q2

REPORT INFORMATION
  Report Type: 
  Country: None (occurrence: None)
  Receive Date: 20120502
  Receipt Date: 20120418
  Transmission Date: 20120825
  Serious: Yes (Hospitalization)
  Sender: FDA-Public Use
  Company Number: FR-ASTRAZENECA-2012SE25845

PATIENT
  Age: 9207 Day
  Sex: Female

DRUGS (1)
  1. XYLOCAINE 5% NAPHAZOLINE [Suspect]
     Indication: LOCAL ANAESTHESIA
     Route: 061
     Dates: start: 20120327, end: 20120327

REACTIONS (7)
  - EYE MOVEMENT DISORDER [None]
  - HYPERTONIA [None]
  - OVERDOSE [None]
  - MALAISE [None]
  - CONVULSION [None]
  - HYPERTENSION [None]
  - MEDICATION ERROR [None]
